FAERS Safety Report 4791427-7 (Version None)
Quarter: 2005Q4

REPORT INFORMATION
  Report Type: 
  Country: None (occurrence: None)
  Receive Date: 20051007
  Receipt Date: 20050824
  Transmission Date: 20060501
  Serious: Yes (Hospitalization, Disabling)
  Sender: FDA-Public Use
  Company Number: JP-MERCK-0508USA05055

PATIENT
  Age: 55 Year
  Sex: Male

DRUGS (8)
  1. PEPCID RPD [Suspect]
     Indication: GASTRIC ULCER
     Route: 048
     Dates: start: 20050614, end: 20050809
  2. GLYCYRON [Concomitant]
     Route: 048
     Dates: start: 20020522, end: 20050809
  3. URSODIOL [Concomitant]
     Route: 048
     Dates: start: 20000120, end: 20050809
  4. SELBEX [Concomitant]
     Route: 048
     Dates: start: 20000329, end: 20050809
  5. AMLODIPINE BESYLATE [Concomitant]
     Route: 048
     Dates: start: 20041120, end: 20050809
  6. ALDOMET [Concomitant]
     Route: 048
     Dates: start: 20041022, end: 20050809
  7. DEPAS [Concomitant]
     Route: 048
     Dates: start: 20041120, end: 20050809
  8. GLUCOBAY [Concomitant]
     Route: 048
     Dates: start: 20050614, end: 20050809

REACTIONS (1)
  - RHABDOMYOLYSIS [None]
